FAERS Safety Report 21805575 (Version 4)
Quarter: 2023Q1

REPORT INFORMATION
  Report Type: Spontaneous
  Country: JP (occurrence: JP)
  Receive Date: 20230102
  Receipt Date: 20230303
  Transmission Date: 20230418
  Serious: Yes (Other)
  Sender: FDA-Public Use
  Company Number: JP-MSD-2212JPN003886J

PATIENT
  Age: 63 Year
  Sex: Male

DRUGS (11)
  1. KEYTRUDA [Suspect]
     Active Substance: PEMBROLIZUMAB
     Indication: Lung neoplasm malignant
     Dosage: UNK
     Route: 041
     Dates: start: 20180112, end: 2018
  2. KEYTRUDA [Suspect]
     Active Substance: PEMBROLIZUMAB
     Dosage: UNK
     Route: 041
     Dates: start: 2018
  3. DEXTROMETHORPHAN HYDROBROMIDE [Concomitant]
     Active Substance: DEXTROMETHORPHAN HYDROBROMIDE
     Dosage: 30 MILLIGRAM, TID, AS NEEDED
     Route: 065
     Dates: start: 20180112
  4. AMLODIPINE BESYLATE [Concomitant]
     Active Substance: AMLODIPINE BESYLATE
     Dosage: 5 MILLIGRAM, QD
     Route: 065
     Dates: start: 20180112
  5. NU-LOTAN [Concomitant]
     Active Substance: LOSARTAN POTASSIUM
     Dosage: 50 MILLIGRAM, QD
     Route: 065
     Dates: start: 20180112
  6. TRICHLORMETHIAZIDE [Concomitant]
     Active Substance: TRICHLORMETHIAZIDE
     Dosage: 2 MILLIGRAM, QD
     Route: 065
     Dates: start: 20180112
  7. ADETPHOS [Concomitant]
     Active Substance: ADENOSINE TRIPHOSPHATE
     Dosage: 60 MILLIGRAM, TID
     Route: 065
     Dates: start: 20180112
  8. DIPHENIDOL HYDROCHLORIDE [Concomitant]
     Active Substance: DIPHENIDOL HYDROCHLORIDE
     Dosage: 25 MILLIGRAM, TID
     Route: 065
     Dates: start: 20180112
  9. TRAVELMIN [DIPHENHYDRAMINE HYDROCHLORIDE;DIPROPHYLLINE] [Concomitant]
     Dosage: 1TABLET, BID
     Route: 065
     Dates: start: 20180112
  10. BENIDIPINE HYDROCHLORIDE [Concomitant]
     Active Substance: BENIDIPINE HYDROCHLORIDE
     Dosage: 4 MILLIGRAM, QD
     Route: 065
     Dates: start: 20180112
  11. TIOTROPIUM BROMIDE MONOHYDRATE [Concomitant]
     Active Substance: TIOTROPIUM BROMIDE MONOHYDRATE
     Dosage: 2 INHALATIONS ONCE, QD
     Dates: start: 20180112

REACTIONS (2)
  - Immune-mediated hepatic disorder [Recovered/Resolved]
  - Interstitial lung disease [Recovered/Resolved]

NARRATIVE: CASE EVENT DATE: 20180201
